FAERS Safety Report 21176028 (Version 5)
Quarter: 2022Q4

REPORT INFORMATION
  Report Type: Spontaneous
  Country: JP (occurrence: JP)
  Receive Date: 20220805
  Receipt Date: 20221115
  Transmission Date: 20230113
  Serious: Yes (Hospitalization, Other)
  Sender: FDA-Public Use
  Company Number: JP-ASTELLAS-2022JP010366

PATIENT
  Age: 75 Year
  Sex: Female

DRUGS (4)
  1. PADCEV [Suspect]
     Active Substance: ENFORTUMAB VEDOTIN-EJFV
     Indication: Transitional cell carcinoma
     Dosage: USUAL DOSE, EVERY OTHER WEEK (ONE DOSE AND ONE REST)
     Route: 065
  2. PADCEV [Suspect]
     Active Substance: ENFORTUMAB VEDOTIN-EJFV
     Dosage: UNK UNK, UNKNOWN FREQ.
     Route: 065
     Dates: start: 20220928
  3. GLYCOSAMINOGLYCANS [Concomitant]
     Active Substance: GLYCOSAMINOGLYCANS
     Indication: Erythema
     Dosage: UNK UNK, UNKNOWN FREQ.
     Route: 065
  4. GLYCOSAMINOGLYCANS [Concomitant]
     Active Substance: GLYCOSAMINOGLYCANS
     Indication: Pruritus

REACTIONS (10)
  - Metastases to lymph nodes [Unknown]
  - Pain [Unknown]
  - Malaise [Unknown]
  - Abdominal discomfort [Unknown]
  - Erythema [Recovered/Resolved]
  - Pruritus [Unknown]
  - Hyperglycaemia [Recovering/Resolving]
  - COVID-19 [Unknown]
  - Product use issue [Unknown]
  - Off label use [Unknown]

NARRATIVE: CASE EVENT DATE: 20220701
